FAERS Safety Report 5530735-9 (Version None)
Quarter: 2007Q4

REPORT INFORMATION
  Report Type: 
  Country: None (occurrence: None)
  Receive Date: 20071130
  Receipt Date: 20070905
  Transmission Date: 20080405
  Serious: No
  Sender: FDA-Public Use
  Company Number: US-BRISTOL-MYERS SQUIBB COMPANY-13900097

PATIENT
  Sex: Female

DRUGS (2)
  1. KENALOG [Suspect]
     Indication: OSTEOARTHRITIS
  2. KENALOG [Suspect]
     Indication: JOINT INJURY

REACTIONS (1)
  - MUSCLE ATROPHY [None]
